FAERS Safety Report 25329394 (Version 2)
Quarter: 2025Q2

REPORT INFORMATION
  Report Type: Spontaneous
  Country: US (occurrence: US)
  Receive Date: 20250519
  Receipt Date: 20250520
  Transmission Date: 20250717
  Serious: Yes (Other)
  Sender: CHATTEM
  Company Number: US-OPELLA-2025OHG015352

PATIENT
  Sex: Female

DRUGS (1)
  1. ALLEGRA D-12 HOUR [Suspect]
     Active Substance: FEXOFENADINE HYDROCHLORIDE\PSEUDOEPHEDRINE HYDROCHLORIDE
     Indication: Hypersensitivity
     Route: 048

REACTIONS (2)
  - Choking [Unknown]
  - Wrong technique in product usage process [Unknown]
